FAERS Safety Report 16203107 (Version 1)
Quarter: 2019Q2

REPORT INFORMATION
  Report Type: Spontaneous
  Country: JP (occurrence: JP)
  Receive Date: 20190416
  Receipt Date: 20190416
  Transmission Date: 20190711
  Serious: Yes (Death, Other)
  Sender: FDA-Public Use
  Company Number: JP-ELI_LILLY_AND_COMPANY-JP201904007299

PATIENT
  Age: 55 Year
  Sex: Male

DRUGS (2)
  1. PACLITAXEL. [Concomitant]
     Active Substance: PACLITAXEL
     Indication: GASTRIC CANCER RECURRENT
     Dosage: 300 MG, CYCLICAL
     Route: 041
  2. CYRAMZA [Suspect]
     Active Substance: RAMUCIRUMAB
     Indication: GASTRIC CANCER RECURRENT
     Dosage: 300 MG, CYCLICAL
     Route: 041

REACTIONS (4)
  - Shock haemorrhagic [Fatal]
  - Epistaxis [Unknown]
  - Aortic perforation [Fatal]
  - Anastomotic ulcer [Unknown]
